FAERS Safety Report 21745558 (Version 8)
Quarter: 2025Q1

REPORT INFORMATION
  Report Type: Spontaneous
  Country: CA (occurrence: CA)
  Receive Date: 20221219
  Receipt Date: 20250224
  Transmission Date: 20250408
  Serious: Yes (Death, Other)
  Sender: BRISTOL-MYERS SQUIBB COMPANY
  Company Number: CA-BRISTOL-MYERS SQUIBB COMPANY-2022-155037

PATIENT
  Age: 44 Year
  Sex: Female
  Weight: 97 kg

DRUGS (623)
  1. ORENCIA [Suspect]
     Active Substance: ABATACEPT
     Indication: Rheumatoid arthritis
     Route: 042
  2. ORENCIA [Suspect]
     Active Substance: ABATACEPT
     Indication: Psoriatic arthropathy
     Route: 042
  3. ORENCIA [Suspect]
     Active Substance: ABATACEPT
     Route: 042
  4. ORENCIA [Suspect]
     Active Substance: ABATACEPT
     Route: 042
  5. ORENCIA [Suspect]
     Active Substance: ABATACEPT
     Route: 042
  6. ORENCIA [Suspect]
     Active Substance: ABATACEPT
     Indication: Rheumatoid arthritis
     Route: 058
  7. ORENCIA [Suspect]
     Active Substance: ABATACEPT
     Indication: Psoriatic arthropathy
     Route: 058
  8. ORENCIA [Suspect]
     Active Substance: ABATACEPT
     Route: 058
  9. ORENCIA [Suspect]
     Active Substance: ABATACEPT
     Route: 058
  10. ORENCIA [Suspect]
     Active Substance: ABATACEPT
     Route: 058
  11. ORENCIA [Suspect]
     Active Substance: ABATACEPT
     Route: 058
  12. ORENCIA [Suspect]
     Active Substance: ABATACEPT
     Route: 058
  13. ORENCIA [Suspect]
     Active Substance: ABATACEPT
  14. ORENCIA [Suspect]
     Active Substance: ABATACEPT
     Route: 058
  15. TRIAMCINOLONE ACETONIDE [Suspect]
     Active Substance: TRIAMCINOLONE ACETONIDE
     Indication: Rheumatoid arthritis
     Route: 014
  16. TRIAMCINOLONE ACETONIDE [Suspect]
     Active Substance: TRIAMCINOLONE ACETONIDE
     Route: 014
  17. TRIAMCINOLONE ACETONIDE [Suspect]
     Active Substance: TRIAMCINOLONE ACETONIDE
  18. TRIAMCINOLONE ACETONIDE [Suspect]
     Active Substance: TRIAMCINOLONE ACETONIDE
  19. ORENCIA [Suspect]
     Active Substance: ABATACEPT
     Indication: Rheumatoid arthritis
  20. ORENCIA [Suspect]
     Active Substance: ABATACEPT
  21. ORENCIA [Suspect]
     Active Substance: ABATACEPT
     Indication: Rheumatoid arthritis
     Route: 015
  22. ORENCIA [Suspect]
     Active Substance: ABATACEPT
     Indication: Psoriatic arthropathy
  23. ACETAMINOPHEN [Concomitant]
     Active Substance: ACETAMINOPHEN
     Indication: Pyrexia
  24. ACETAMINOPHEN [Concomitant]
     Active Substance: ACETAMINOPHEN
     Indication: Rheumatoid arthritis
  25. ACETAMINOPHEN [Concomitant]
     Active Substance: ACETAMINOPHEN
     Indication: Pain
     Route: 048
  26. ACETAMINOPHEN\OXYCODONE HYDROCHLORIDE [Concomitant]
     Active Substance: ACETAMINOPHEN\OXYCODONE HYDROCHLORIDE
     Indication: Product used for unknown indication
  27. ACTEMRA [Concomitant]
     Active Substance: TOCILIZUMAB
     Indication: Rheumatoid arthritis
     Route: 048
  28. ACTEMRA [Concomitant]
     Active Substance: TOCILIZUMAB
     Route: 042
  29. ACTEMRA [Concomitant]
     Active Substance: TOCILIZUMAB
  30. ACTEMRA [Concomitant]
     Active Substance: TOCILIZUMAB
     Route: 042
  31. ACTEMRA [Concomitant]
     Active Substance: TOCILIZUMAB
     Route: 042
  32. ACTEMRA [Concomitant]
     Active Substance: TOCILIZUMAB
     Route: 042
  33. ACTEMRA [Concomitant]
     Active Substance: TOCILIZUMAB
     Route: 042
  34. ACTEMRA [Concomitant]
     Active Substance: TOCILIZUMAB
     Route: 058
  35. ACTEMRA [Concomitant]
     Active Substance: TOCILIZUMAB
     Route: 042
  36. ACTEMRA [Concomitant]
     Active Substance: TOCILIZUMAB
     Route: 042
  37. ACTEMRA [Concomitant]
     Active Substance: TOCILIZUMAB
     Route: 042
  38. ACTEMRA [Concomitant]
     Active Substance: TOCILIZUMAB
     Route: 042
  39. ACTEMRA [Concomitant]
     Active Substance: TOCILIZUMAB
  40. ACTEMRA [Concomitant]
     Active Substance: TOCILIZUMAB
     Route: 058
  41. ACTEMRA [Concomitant]
     Active Substance: TOCILIZUMAB
     Route: 042
  42. ACTEMRA [Concomitant]
     Active Substance: TOCILIZUMAB
     Route: 042
  43. ACTEMRA [Concomitant]
     Active Substance: TOCILIZUMAB
     Route: 042
  44. ADALIMUMAB [Concomitant]
     Active Substance: ADALIMUMAB
     Indication: Rheumatoid arthritis
     Route: 058
  45. ADALIMUMAB [Concomitant]
     Active Substance: ADALIMUMAB
     Indication: Psoriatic arthropathy
     Route: 058
  46. ADALIMUMAB [Concomitant]
     Active Substance: ADALIMUMAB
     Route: 047
  47. ADALIMUMAB [Concomitant]
     Active Substance: ADALIMUMAB
     Route: 042
  48. ADALIMUMAB [Concomitant]
     Active Substance: ADALIMUMAB
     Route: 048
  49. ADALIMUMAB [Concomitant]
     Active Substance: ADALIMUMAB
     Route: 048
  50. ACETAMINOPHEN [Concomitant]
     Active Substance: ACETAMINOPHEN
     Indication: Product used for unknown indication
  51. ARAVA [Concomitant]
     Active Substance: LEFLUNOMIDE
     Indication: Rheumatoid arthritis
     Route: 048
  52. ARAVA [Concomitant]
     Active Substance: LEFLUNOMIDE
     Route: 048
  53. ARAVA [Concomitant]
     Active Substance: LEFLUNOMIDE
     Route: 048
  54. ARAVA [Concomitant]
     Active Substance: LEFLUNOMIDE
  55. ARAVA [Concomitant]
     Active Substance: LEFLUNOMIDE
     Route: 019
  56. ARAVA [Concomitant]
     Active Substance: LEFLUNOMIDE
     Route: 005
  57. ARAVA [Concomitant]
     Active Substance: LEFLUNOMIDE
  58. CALCIUM CARBONATE [Concomitant]
     Active Substance: CALCIUM CARBONATE
     Indication: Product used for unknown indication
  59. CETIRIZINE HYDROCHLORIDE [Concomitant]
     Active Substance: CETIRIZINE HYDROCHLORIDE
     Indication: Rheumatoid arthritis
     Route: 048
  60. CETIRIZINE HYDROCHLORIDE [Concomitant]
     Active Substance: CETIRIZINE HYDROCHLORIDE
     Route: 048
  61. CETIRIZINE HYDROCHLORIDE [Concomitant]
     Active Substance: CETIRIZINE HYDROCHLORIDE
  62. CETIRIZINE HYDROCHLORIDE [Concomitant]
     Active Substance: CETIRIZINE HYDROCHLORIDE
  63. CETIRIZINE HYDROCHLORIDE [Concomitant]
     Active Substance: CETIRIZINE HYDROCHLORIDE
     Route: 048
  64. CETIRIZINE HYDROCHLORIDE [Concomitant]
     Active Substance: CETIRIZINE HYDROCHLORIDE
     Route: 048
  65. CETIRIZINE HYDROCHLORIDE [Concomitant]
     Active Substance: CETIRIZINE HYDROCHLORIDE
  66. CETIRIZINE HYDROCHLORIDE [Concomitant]
     Active Substance: CETIRIZINE HYDROCHLORIDE
  67. CETIRIZINE HYDROCHLORIDE [Concomitant]
     Active Substance: CETIRIZINE HYDROCHLORIDE
     Route: 048
  68. CETIRIZINE HYDROCHLORIDE [Concomitant]
     Active Substance: CETIRIZINE HYDROCHLORIDE
  69. CHLORHEXIDINE [Concomitant]
     Active Substance: CHLORHEXIDINE
     Indication: Product used for unknown indication
     Route: 061
  70. CHLORHEXIDINE [Concomitant]
     Active Substance: CHLORHEXIDINE
     Route: 048
  71. CHLORHEXIDINE [Concomitant]
     Active Substance: CHLORHEXIDINE
  72. CHLORHEXIDINE GLUCONATE [Concomitant]
     Active Substance: CHLORHEXIDINE GLUCONATE
     Indication: Product used for unknown indication
  73. CHLORHEXIDINE GLUCONATE [Concomitant]
     Active Substance: CHLORHEXIDINE GLUCONATE
     Route: 048
  74. CHLORHEXIDINE GLUCONATE [Concomitant]
     Active Substance: CHLORHEXIDINE GLUCONATE
     Route: 061
  75. CHLORHEXIDINE GLUCONATE [Concomitant]
     Active Substance: CHLORHEXIDINE GLUCONATE
     Route: 002
  76. CIMZIA [Concomitant]
     Active Substance: CERTOLIZUMAB PEGOL
     Indication: Rheumatoid arthritis
     Route: 058
  77. CIMZIA [Concomitant]
     Active Substance: CERTOLIZUMAB PEGOL
     Indication: Psoriatic arthropathy
     Route: 058
  78. CIMZIA [Concomitant]
     Active Substance: CERTOLIZUMAB PEGOL
     Indication: Psoriasis
     Route: 005
  79. CIMZIA [Concomitant]
     Active Substance: CERTOLIZUMAB PEGOL
     Route: 058
  80. CIMZIA [Concomitant]
     Active Substance: CERTOLIZUMAB PEGOL
     Route: 058
  81. CIMZIA [Concomitant]
     Active Substance: CERTOLIZUMAB PEGOL
     Route: 042
  82. CIMZIA [Concomitant]
     Active Substance: CERTOLIZUMAB PEGOL
     Route: 058
  83. CIMZIA [Concomitant]
     Active Substance: CERTOLIZUMAB PEGOL
  84. CIMZIA [Concomitant]
     Active Substance: CERTOLIZUMAB PEGOL
     Route: 058
  85. CORTISONE (HYDROCORTISONE) [Concomitant]
     Active Substance: HYDROCORTISONE
     Indication: Rheumatoid arthritis
     Route: 048
  86. CORTISONE (HYDROCORTISONE) [Concomitant]
     Active Substance: HYDROCORTISONE
     Route: 003
  87. CORTISONE (HYDROCORTISONE) [Concomitant]
     Active Substance: HYDROCORTISONE
     Route: 050
  88. CORTISONE (HYDROCORTISONE) [Concomitant]
     Active Substance: HYDROCORTISONE
     Route: 058
  89. CORTISONE (HYDROCORTISONE) [Concomitant]
     Active Substance: HYDROCORTISONE
     Route: 058
  90. CORTISONE (HYDROCORTISONE) [Concomitant]
     Active Substance: HYDROCORTISONE
     Route: 048
  91. CORTISONE (HYDROCORTISONE) [Concomitant]
     Active Substance: HYDROCORTISONE
     Route: 058
  92. CORTISONE (HYDROCORTISONE) [Concomitant]
     Active Substance: HYDROCORTISONE
     Route: 061
  93. CORTISONE (HYDROCORTISONE) [Concomitant]
     Active Substance: HYDROCORTISONE
     Route: 058
  94. TOPICORT [Concomitant]
     Active Substance: DESOXIMETASONE
     Indication: Rheumatoid arthritis
     Route: 061
  95. TOPICORT [Concomitant]
     Active Substance: DESOXIMETASONE
     Route: 048
  96. TOPICORT [Concomitant]
     Active Substance: DESOXIMETASONE
     Route: 061
  97. TOPICORT [Concomitant]
     Active Substance: DESOXIMETASONE
     Route: 058
  98. TOPICORT [Concomitant]
     Active Substance: DESOXIMETASONE
     Route: 003
  99. TOPICORT [Concomitant]
     Active Substance: DESOXIMETASONE
     Route: 050
  100. TOPICORT [Concomitant]
     Active Substance: DESOXIMETASONE
     Route: 048
  101. TOPICORT [Concomitant]
     Active Substance: DESOXIMETASONE
     Route: 016
  102. TOPICORT [Concomitant]
     Active Substance: DESOXIMETASONE
     Route: 003
  103. TOPICORT [Concomitant]
     Active Substance: DESOXIMETASONE
     Route: 048
  104. TOPICORT [Concomitant]
     Active Substance: DESOXIMETASONE
     Route: 048
  105. TOPICORT [Concomitant]
     Active Substance: DESOXIMETASONE
     Route: 048
  106. TOPICORT [Concomitant]
     Active Substance: DESOXIMETASONE
  107. TOPICORT [Concomitant]
     Active Substance: DESOXIMETASONE
  108. TOPICORT [Concomitant]
     Active Substance: DESOXIMETASONE
     Route: 042
  109. DICLOFENAC [Concomitant]
     Active Substance: DICLOFENAC
     Indication: Product used for unknown indication
     Route: 048
  110. DICLOFENAC [Concomitant]
     Active Substance: DICLOFENAC
     Route: 047
  111. DICLOFENAC [Concomitant]
     Active Substance: DICLOFENAC
     Route: 048
  112. DICLOFENAC [Concomitant]
     Active Substance: DICLOFENAC
     Route: 048
  113. ENBREL [Concomitant]
     Active Substance: ETANERCEPT
     Indication: Rheumatoid arthritis
  114. ENBREL [Concomitant]
     Active Substance: ETANERCEPT
     Indication: Psoriatic arthropathy
  115. ENBREL [Concomitant]
     Active Substance: ETANERCEPT
     Route: 058
  116. ENBREL [Concomitant]
     Active Substance: ETANERCEPT
     Route: 058
  117. ENBREL [Concomitant]
     Active Substance: ETANERCEPT
     Route: 058
  118. ENBREL [Concomitant]
     Active Substance: ETANERCEPT
     Route: 061
  119. ENBREL [Concomitant]
     Active Substance: ETANERCEPT
  120. ENBREL [Concomitant]
     Active Substance: ETANERCEPT
     Route: 058
  121. ENBREL [Concomitant]
     Active Substance: ETANERCEPT
     Route: 058
  122. ENBREL [Concomitant]
     Active Substance: ETANERCEPT
     Route: 058
  123. ENBREL [Concomitant]
     Active Substance: ETANERCEPT
     Route: 048
  124. ENBREL [Concomitant]
     Active Substance: ETANERCEPT
     Route: 058
  125. ENBREL [Concomitant]
     Active Substance: ETANERCEPT
  126. FOLIC ACID [Concomitant]
     Active Substance: FOLIC ACID
     Indication: Rheumatoid arthritis
     Route: 048
  127. FOLIC ACID [Concomitant]
     Active Substance: FOLIC ACID
  128. FOLIC ACID [Concomitant]
     Active Substance: FOLIC ACID
  129. FOLIC ACID [Concomitant]
     Active Substance: FOLIC ACID
  130. FOLIC ACID [Concomitant]
     Active Substance: FOLIC ACID
     Route: 048
  131. FOLIC ACID [Concomitant]
     Active Substance: FOLIC ACID
  132. FOLIC ACID [Concomitant]
     Active Substance: FOLIC ACID
     Route: 048
  133. FOLIC ACID [Concomitant]
     Active Substance: FOLIC ACID
  134. FOLIC ACID [Concomitant]
     Active Substance: FOLIC ACID
     Route: 058
  135. FOLIC ACID [Concomitant]
     Active Substance: FOLIC ACID
  136. FOLIC ACID [Concomitant]
     Active Substance: FOLIC ACID
  137. FOLIC ACID [Concomitant]
     Active Substance: FOLIC ACID
  138. FOLIC ACID [Concomitant]
     Active Substance: FOLIC ACID
     Route: 016
  139. FOLIC ACID [Concomitant]
     Active Substance: FOLIC ACID
  140. FOLIC ACID [Concomitant]
     Active Substance: FOLIC ACID
  141. FOLIC ACID [Concomitant]
     Active Substance: FOLIC ACID
  142. FOLIC ACID [Concomitant]
     Active Substance: FOLIC ACID
  143. FOLIC ACID [Concomitant]
     Active Substance: FOLIC ACID
  144. FOLIC ACID [Concomitant]
     Active Substance: FOLIC ACID
     Route: 048
  145. FOLIC ACID [Concomitant]
     Active Substance: FOLIC ACID
     Route: 058
  146. FOSAMAX [Concomitant]
     Active Substance: ALENDRONATE SODIUM
     Indication: Rheumatoid arthritis
     Route: 048
  147. FOSAMAX [Concomitant]
     Active Substance: ALENDRONATE SODIUM
  148. FOSAMAX [Concomitant]
     Active Substance: ALENDRONATE SODIUM
  149. HUMIRA [Concomitant]
     Active Substance: ADALIMUMAB
     Indication: Rheumatoid arthritis
     Route: 058
  150. HUMIRA [Concomitant]
     Active Substance: ADALIMUMAB
     Indication: Psoriatic arthropathy
     Route: 058
  151. HUMIRA [Concomitant]
     Active Substance: ADALIMUMAB
  152. HUMIRA [Concomitant]
     Active Substance: ADALIMUMAB
     Route: 058
  153. HUMIRA [Concomitant]
     Active Substance: ADALIMUMAB
     Route: 058
  154. HUMIRA [Concomitant]
     Active Substance: ADALIMUMAB
     Route: 057
  155. HUMIRA [Concomitant]
     Active Substance: ADALIMUMAB
     Route: 058
  156. HUMIRA [Concomitant]
     Active Substance: ADALIMUMAB
     Route: 058
  157. HYDROXYCHLOROQUINE [Concomitant]
     Active Substance: HYDROXYCHLOROQUINE
     Indication: Rheumatoid arthritis
     Route: 048
  158. HYDROXYCHLOROQUINE [Concomitant]
     Active Substance: HYDROXYCHLOROQUINE
     Indication: Systemic lupus erythematosus
     Route: 005
  159. HYDROXYCHLOROQUINE [Concomitant]
     Active Substance: HYDROXYCHLOROQUINE
  160. HYDROXYCHLOROQUINE [Concomitant]
     Active Substance: HYDROXYCHLOROQUINE
  161. HYDROXYCHLOROQUINE [Concomitant]
     Active Substance: HYDROXYCHLOROQUINE
     Route: 048
  162. HYDROXYCHLOROQUINE [Concomitant]
     Active Substance: HYDROXYCHLOROQUINE
     Route: 048
  163. HYDROXYCHLOROQUINE [Concomitant]
     Active Substance: HYDROXYCHLOROQUINE
  164. HYDROXYCHLOROQUINE [Concomitant]
     Active Substance: HYDROXYCHLOROQUINE
  165. HYDROXYCHLOROQUINE [Concomitant]
     Active Substance: HYDROXYCHLOROQUINE
     Route: 048
  166. INFLIXIMAB [Concomitant]
     Active Substance: INFLIXIMAB
     Indication: Rheumatoid arthritis
  167. INFLIXIMAB [Concomitant]
     Active Substance: INFLIXIMAB
     Indication: Psoriatic arthropathy
     Route: 042
  168. INFLIXIMAB [Concomitant]
     Active Substance: INFLIXIMAB
     Route: 042
  169. INFLIXIMAB [Concomitant]
     Active Substance: INFLIXIMAB
  170. INFLIXIMAB [Concomitant]
     Active Substance: INFLIXIMAB
     Route: 042
  171. LEFLUNOMIDE [Concomitant]
     Active Substance: LEFLUNOMIDE
     Indication: Rheumatoid arthritis
     Route: 048
  172. LEFLUNOMIDE [Concomitant]
     Active Substance: LEFLUNOMIDE
     Route: 048
  173. LEFLUNOMIDE [Concomitant]
     Active Substance: LEFLUNOMIDE
     Route: 048
  174. LEFLUNOMIDE [Concomitant]
     Active Substance: LEFLUNOMIDE
     Route: 048
  175. LEFLUNOMIDE [Concomitant]
     Active Substance: LEFLUNOMIDE
  176. LEFLUNOMIDE [Concomitant]
     Active Substance: LEFLUNOMIDE
  177. LEFLUNOMIDE [Concomitant]
     Active Substance: LEFLUNOMIDE
  178. LEFLUNOMIDE [Concomitant]
     Active Substance: LEFLUNOMIDE
     Route: 048
  179. METHOTREXATE [Concomitant]
     Active Substance: METHOTREXATE
     Indication: Rheumatoid arthritis
  180. METHOTREXATE [Concomitant]
     Active Substance: METHOTREXATE
     Route: 048
  181. METHOTREXATE [Concomitant]
     Active Substance: METHOTREXATE
     Route: 048
  182. METHOTREXATE [Concomitant]
     Active Substance: METHOTREXATE
     Route: 037
  183. METHOTREXATE [Concomitant]
     Active Substance: METHOTREXATE
     Route: 058
  184. METHOTREXATE [Concomitant]
     Active Substance: METHOTREXATE
     Route: 058
  185. METHOTREXATE [Concomitant]
     Active Substance: METHOTREXATE
     Route: 048
  186. METHOTREXATE [Concomitant]
     Active Substance: METHOTREXATE
  187. METHOTREXATE [Concomitant]
     Active Substance: METHOTREXATE
  188. METHOTREXATE [Concomitant]
     Active Substance: METHOTREXATE
     Route: 048
  189. METHOTREXATE [Concomitant]
     Active Substance: METHOTREXATE
     Route: 048
  190. METHOTREXATE [Concomitant]
     Active Substance: METHOTREXATE
     Route: 048
  191. METHOTREXATE [Concomitant]
     Active Substance: METHOTREXATE
     Route: 048
  192. METHOTREXATE [Concomitant]
     Active Substance: METHOTREXATE
     Route: 048
  193. METHOTREXATE [Concomitant]
     Active Substance: METHOTREXATE
     Route: 048
  194. METHOTREXATE [Concomitant]
     Active Substance: METHOTREXATE
     Route: 048
  195. METHOTREXATE [Concomitant]
     Active Substance: METHOTREXATE
     Route: 058
  196. METHOTREXATE [Concomitant]
     Active Substance: METHOTREXATE
     Route: 048
  197. METHOTREXATE [Concomitant]
     Active Substance: METHOTREXATE
     Route: 013
  198. METHOTREXATE [Concomitant]
     Active Substance: METHOTREXATE
     Route: 048
  199. METHOTREXATE [Concomitant]
     Active Substance: METHOTREXATE
     Route: 048
  200. METHOTREXATE [Concomitant]
     Active Substance: METHOTREXATE
     Route: 048
  201. METHOTREXATE [Concomitant]
     Active Substance: METHOTREXATE
     Route: 058
  202. METHOTREXATE [Concomitant]
     Active Substance: METHOTREXATE
     Route: 042
  203. METHOTREXATE [Concomitant]
     Active Substance: METHOTREXATE
     Route: 013
  204. METHOTREXATE [Concomitant]
     Active Substance: METHOTREXATE
  205. METHOTREXATE [Concomitant]
     Active Substance: METHOTREXATE
  206. METHOTREXATE [Concomitant]
     Active Substance: METHOTREXATE
     Route: 048
  207. METHOTREXATE [Concomitant]
     Active Substance: METHOTREXATE
     Route: 048
  208. METHOTREXATE [Concomitant]
     Active Substance: METHOTREXATE
     Route: 048
  209. METHOTREXATE [Concomitant]
     Active Substance: METHOTREXATE
     Route: 048
  210. METHOTREXATE [Concomitant]
     Active Substance: METHOTREXATE
     Route: 048
  211. METHOTREXATE [Concomitant]
     Active Substance: METHOTREXATE
     Route: 013
  212. METHOTREXATE [Concomitant]
     Active Substance: METHOTREXATE
     Route: 048
  213. METHOTREXATE [Concomitant]
     Active Substance: METHOTREXATE
     Route: 058
  214. METHOTREXATE [Concomitant]
     Active Substance: METHOTREXATE
     Route: 058
  215. METHOTREXATE [Concomitant]
     Active Substance: METHOTREXATE
     Route: 058
  216. METHOTREXATE [Concomitant]
     Active Substance: METHOTREXATE
     Route: 048
  217. METHOTREXATE [Concomitant]
     Active Substance: METHOTREXATE
     Route: 013
  218. METHOTREXATE [Concomitant]
     Active Substance: METHOTREXATE
     Route: 042
  219. METHOTREXATE [Concomitant]
     Active Substance: METHOTREXATE
     Route: 058
  220. METHOTREXATE [Concomitant]
     Active Substance: METHOTREXATE
     Route: 058
  221. METHOTREXATE [Concomitant]
     Active Substance: METHOTREXATE
     Route: 013
  222. METHOTREXATE [Concomitant]
     Active Substance: METHOTREXATE
     Route: 058
  223. METHOTREXATE [Concomitant]
     Active Substance: METHOTREXATE
     Route: 013
  224. METHOTREXATE [Concomitant]
     Active Substance: METHOTREXATE
     Route: 013
  225. METHOTREXATE [Concomitant]
     Active Substance: METHOTREXATE
     Route: 013
  226. METHOTREXATE [Concomitant]
     Active Substance: METHOTREXATE
     Route: 048
  227. METHOTREXATE [Concomitant]
     Active Substance: METHOTREXATE
     Route: 048
  228. METHOTREXATE [Concomitant]
     Active Substance: METHOTREXATE
     Route: 048
  229. METHOTREXATE [Concomitant]
     Active Substance: METHOTREXATE
     Route: 048
  230. METHOTREXATE [Concomitant]
     Active Substance: METHOTREXATE
     Route: 048
  231. METHOTREXATE [Concomitant]
     Active Substance: METHOTREXATE
     Route: 048
  232. METHOTREXATE [Concomitant]
     Active Substance: METHOTREXATE
     Route: 048
  233. METHOTREXATE [Concomitant]
     Active Substance: METHOTREXATE
     Route: 048
  234. METHOTREXATE [Concomitant]
     Active Substance: METHOTREXATE
     Route: 048
  235. METHOTREXATE [Concomitant]
     Active Substance: METHOTREXATE
     Route: 048
  236. METHOTREXATE [Concomitant]
     Active Substance: METHOTREXATE
     Route: 048
  237. METHOTREXATE [Concomitant]
     Active Substance: METHOTREXATE
     Route: 048
  238. METHOTREXATE [Concomitant]
     Active Substance: METHOTREXATE
     Route: 048
  239. METHOTREXATE [Concomitant]
     Active Substance: METHOTREXATE
     Route: 048
  240. METHOTREXATE [Concomitant]
     Active Substance: METHOTREXATE
     Route: 048
  241. METHOTREXATE [Concomitant]
     Active Substance: METHOTREXATE
     Route: 048
  242. METHOTREXATE [Concomitant]
     Active Substance: METHOTREXATE
     Route: 058
  243. METHOTREXATE [Concomitant]
     Active Substance: METHOTREXATE
     Route: 013
  244. METHOTREXATE [Concomitant]
     Active Substance: METHOTREXATE
     Route: 048
  245. METHOTREXATE [Concomitant]
     Active Substance: METHOTREXATE
     Route: 058
  246. METHOTREXATE [Concomitant]
     Active Substance: METHOTREXATE
     Route: 058
  247. METHOTREXATE [Concomitant]
     Active Substance: METHOTREXATE
     Route: 048
  248. OXYCODONE [Concomitant]
     Active Substance: OXYCODONE
     Indication: Product used for unknown indication
  249. OXYCODONE [Concomitant]
     Active Substance: OXYCODONE
  250. OXYCODONE [Concomitant]
     Active Substance: OXYCODONE
     Route: 042
  251. OXYCODONE [Concomitant]
     Active Substance: OXYCODONE
  252. OXYCODONE HYDROCHLORIDE [Concomitant]
     Active Substance: OXYCODONE HYDROCHLORIDE
     Indication: Product used for unknown indication
  253. OXYCODONE TEREPHTHALATE [Concomitant]
     Active Substance: OXYCODONE TEREPHTHALATE
     Indication: Product used for unknown indication
  254. OXYCODONE TEREPHTHALATE [Concomitant]
     Active Substance: OXYCODONE TEREPHTHALATE
     Route: 016
  255. PERIOGARD [Concomitant]
     Active Substance: CHLORHEXIDINE GLUCONATE
     Indication: Product used for unknown indication
     Route: 002
  256. PERIOGARD [Concomitant]
     Active Substance: CHLORHEXIDINE GLUCONATE
     Route: 048
  257. PERIOGARD [Concomitant]
     Active Substance: CHLORHEXIDINE GLUCONATE
     Route: 016
  258. PSEUDOEPHEDRINE [Concomitant]
     Active Substance: PSEUDOEPHEDRINE
     Indication: Product used for unknown indication
  259. PSEUDOEPHEDRINE [Concomitant]
     Active Substance: PSEUDOEPHEDRINE
     Route: 002
  260. CETIRIZINE HYDROCHLORIDE\PSEUDOEPHEDRINE HYDROCHLORIDE [Concomitant]
     Active Substance: CETIRIZINE HYDROCHLORIDE\PSEUDOEPHEDRINE HYDROCHLORIDE
     Indication: Rheumatoid arthritis
  261. CETIRIZINE HYDROCHLORIDE\PSEUDOEPHEDRINE HYDROCHLORIDE [Concomitant]
     Active Substance: CETIRIZINE HYDROCHLORIDE\PSEUDOEPHEDRINE HYDROCHLORIDE
  262. CETIRIZINE HYDROCHLORIDE\PSEUDOEPHEDRINE HYDROCHLORIDE [Concomitant]
     Active Substance: CETIRIZINE HYDROCHLORIDE\PSEUDOEPHEDRINE HYDROCHLORIDE
  263. REMICADE [Concomitant]
     Active Substance: INFLIXIMAB
     Indication: Rheumatoid arthritis
     Route: 042
  264. REMICADE [Concomitant]
     Active Substance: INFLIXIMAB
     Route: 058
  265. REMICADE [Concomitant]
     Active Substance: INFLIXIMAB
     Route: 042
  266. REMICADE [Concomitant]
     Active Substance: INFLIXIMAB
     Route: 042
  267. REMICADE [Concomitant]
     Active Substance: INFLIXIMAB
  268. REMICADE [Concomitant]
     Active Substance: INFLIXIMAB
  269. RITUXIMAB [Concomitant]
     Active Substance: RITUXIMAB
     Indication: Rheumatoid arthritis
     Route: 058
  270. RITUXIMAB [Concomitant]
     Active Substance: RITUXIMAB
     Route: 042
  271. RITUXIMAB [Concomitant]
     Active Substance: RITUXIMAB
     Route: 016
  272. RITUXIMAB [Concomitant]
     Active Substance: RITUXIMAB
     Route: 041
  273. RITUXIMAB [Concomitant]
     Active Substance: RITUXIMAB
     Route: 042
  274. RITUXIMAB [Concomitant]
     Active Substance: RITUXIMAB
     Route: 042
  275. RITUXIMAB [Concomitant]
     Active Substance: RITUXIMAB
     Route: 058
  276. RITUXIMAB [Concomitant]
     Active Substance: RITUXIMAB
  277. RITUXIMAB [Concomitant]
     Active Substance: RITUXIMAB
     Route: 041
  278. SIMPONI [Concomitant]
     Active Substance: GOLIMUMAB
     Indication: Rheumatoid arthritis
     Route: 058
  279. SIMPONI [Concomitant]
     Active Substance: GOLIMUMAB
     Indication: Psoriatic arthropathy
     Route: 052
  280. SIMPONI [Concomitant]
     Active Substance: GOLIMUMAB
     Route: 042
  281. SIMPONI [Concomitant]
     Active Substance: GOLIMUMAB
     Route: 052
  282. SIMPONI [Concomitant]
     Active Substance: GOLIMUMAB
     Route: 058
  283. SIMPONI [Concomitant]
     Active Substance: GOLIMUMAB
     Route: 058
  284. SIMPONI [Concomitant]
     Active Substance: GOLIMUMAB
  285. SIMPONI [Concomitant]
     Active Substance: GOLIMUMAB
     Route: 052
  286. SIMPONI [Concomitant]
     Active Substance: GOLIMUMAB
     Route: 042
  287. SIMPONI [Concomitant]
     Active Substance: GOLIMUMAB
     Route: 058
  288. SULFAMETHOXAZOLE [Concomitant]
     Active Substance: SULFAMETHOXAZOLE
     Indication: Product used for unknown indication
     Route: 042
  289. SULFAMETHOXAZOLE [Concomitant]
     Active Substance: SULFAMETHOXAZOLE
  290. SULFAMETHOXAZOLE\TRIMETHOPRIM [Concomitant]
     Active Substance: SULFAMETHOXAZOLE\TRIMETHOPRIM
     Indication: Product used for unknown indication
  291. SULFAMETHOXAZOLE\TRIMETHOPRIM [Concomitant]
     Active Substance: SULFAMETHOXAZOLE\TRIMETHOPRIM
     Route: 067
  292. SULFASALAZINE [Concomitant]
     Active Substance: SULFASALAZINE
     Indication: Rheumatoid arthritis
     Route: 058
  293. SULFASALAZINE [Concomitant]
     Active Substance: SULFASALAZINE
     Route: 048
  294. SULFASALAZINE [Concomitant]
     Active Substance: SULFASALAZINE
     Route: 048
  295. SULFASALAZINE [Concomitant]
     Active Substance: SULFASALAZINE
  296. SULFASALAZINE [Concomitant]
     Active Substance: SULFASALAZINE
  297. SULFASALAZINE [Concomitant]
     Active Substance: SULFASALAZINE
     Route: 048
  298. SULFASALAZINE [Concomitant]
     Active Substance: SULFASALAZINE
     Route: 048
  299. SULFASALAZINE [Concomitant]
     Active Substance: SULFASALAZINE
     Route: 048
  300. SULFASALAZINE [Concomitant]
     Active Substance: SULFASALAZINE
     Route: 048
  301. SULFASALAZINE [Concomitant]
     Active Substance: SULFASALAZINE
     Route: 058
  302. SULFASALAZINE [Concomitant]
     Active Substance: SULFASALAZINE
     Route: 058
  303. SULFASALAZINE [Concomitant]
     Active Substance: SULFASALAZINE
  304. SULFASALAZINE [Concomitant]
     Active Substance: SULFASALAZINE
  305. SULFASALAZINE [Concomitant]
     Active Substance: SULFASALAZINE
  306. SULFASALAZINE [Concomitant]
     Active Substance: SULFASALAZINE
     Route: 048
  307. SULFASALAZINE [Concomitant]
     Active Substance: SULFASALAZINE
     Route: 048
  308. SULFASALAZINE [Concomitant]
     Active Substance: SULFASALAZINE
  309. SULFASALAZINE [Concomitant]
     Active Substance: SULFASALAZINE
     Route: 048
  310. SULFASALAZINE [Concomitant]
     Active Substance: SULFASALAZINE
     Route: 048
  311. SULFASALAZINE [Concomitant]
     Active Substance: SULFASALAZINE
  312. SULFASALAZINE [Concomitant]
     Active Substance: SULFASALAZINE
     Route: 048
  313. SULFASALAZINE [Concomitant]
     Active Substance: SULFASALAZINE
     Route: 048
  314. SULFASALAZINE [Concomitant]
     Active Substance: SULFASALAZINE
     Route: 048
  315. SULFASALAZINE [Concomitant]
     Active Substance: SULFASALAZINE
     Route: 048
  316. SULFASALAZINE [Concomitant]
     Active Substance: SULFASALAZINE
     Route: 048
  317. SULFASALAZINE [Concomitant]
     Active Substance: SULFASALAZINE
     Route: 050
  318. SULFASALAZINE [Concomitant]
     Active Substance: SULFASALAZINE
     Route: 050
  319. SULFASALAZINE [Concomitant]
     Active Substance: SULFASALAZINE
     Route: 050
  320. SULFASALAZINE [Concomitant]
     Active Substance: SULFASALAZINE
     Route: 050
  321. SULFASALAZINE [Concomitant]
     Active Substance: SULFASALAZINE
     Route: 050
  322. SULFASALAZINE [Concomitant]
     Active Substance: SULFASALAZINE
     Route: 050
  323. SULFASALAZINE [Concomitant]
     Active Substance: SULFASALAZINE
     Route: 050
  324. TOFACITINIB CITRATE [Concomitant]
     Active Substance: TOFACITINIB CITRATE
     Indication: Rheumatoid arthritis
  325. TOFACITINIB CITRATE [Concomitant]
     Active Substance: TOFACITINIB CITRATE
  326. TOFACITINIB CITRATE [Concomitant]
     Active Substance: TOFACITINIB CITRATE
  327. TOFACITINIB CITRATE [Concomitant]
     Active Substance: TOFACITINIB CITRATE
  328. TOFACITINIB CITRATE [Concomitant]
     Active Substance: TOFACITINIB CITRATE
  329. TOFACITINIB [Concomitant]
     Active Substance: TOFACITINIB
     Indication: Product used for unknown indication
  330. TYLENOL [Concomitant]
     Active Substance: ACETAMINOPHEN
     Indication: Product used for unknown indication
     Route: 042
  331. TYLENOL [Concomitant]
     Active Substance: ACETAMINOPHEN
     Route: 058
  332. XELJANZ [Concomitant]
     Active Substance: TOFACITINIB CITRATE
     Indication: Rheumatoid arthritis
     Route: 050
  333. XELJANZ [Concomitant]
     Active Substance: TOFACITINIB CITRATE
  334. XELJANZ [Concomitant]
     Active Substance: TOFACITINIB CITRATE
  335. XELJANZ [Concomitant]
     Active Substance: TOFACITINIB CITRATE
     Route: 048
  336. XELJANZ [Concomitant]
     Active Substance: TOFACITINIB CITRATE
  337. XELJANZ [Concomitant]
     Active Substance: TOFACITINIB CITRATE
     Route: 048
  338. XELJANZ [Concomitant]
     Active Substance: TOFACITINIB CITRATE
     Route: 048
  339. XELJANZ [Concomitant]
     Active Substance: TOFACITINIB CITRATE
  340. XELJANZ [Concomitant]
     Active Substance: TOFACITINIB CITRATE
  341. XELJANZ [Concomitant]
     Active Substance: TOFACITINIB CITRATE
     Route: 048
  342. XELJANZ [Concomitant]
     Active Substance: TOFACITINIB CITRATE
  343. PREDNISONE [Concomitant]
     Active Substance: PREDNISONE
     Indication: Rheumatoid arthritis
  344. PREDNISONE [Concomitant]
     Active Substance: PREDNISONE
     Indication: Systemic lupus erythematosus
     Route: 042
  345. PREDNISONE [Concomitant]
     Active Substance: PREDNISONE
     Indication: Synovitis
     Route: 048
  346. PREDNISONE [Concomitant]
     Active Substance: PREDNISONE
     Indication: Psoriatic arthropathy
     Route: 048
  347. PREDNISONE [Concomitant]
     Active Substance: PREDNISONE
     Indication: Pemphigus
  348. PREDNISONE [Concomitant]
     Active Substance: PREDNISONE
     Indication: Condition aggravated
     Route: 048
  349. PREDNISONE [Concomitant]
     Active Substance: PREDNISONE
     Route: 048
  350. PREDNISONE [Concomitant]
     Active Substance: PREDNISONE
  351. PREDNISONE [Concomitant]
     Active Substance: PREDNISONE
     Route: 048
  352. PREDNISONE [Concomitant]
     Active Substance: PREDNISONE
     Route: 048
  353. PREDNISONE [Concomitant]
     Active Substance: PREDNISONE
  354. PREDNISONE [Concomitant]
     Active Substance: PREDNISONE
     Route: 042
  355. PREDNISONE [Concomitant]
     Active Substance: PREDNISONE
     Route: 048
  356. PREDNISONE [Concomitant]
     Active Substance: PREDNISONE
     Route: 048
  357. PREDNISONE [Concomitant]
     Active Substance: PREDNISONE
  358. PREDNISONE [Concomitant]
     Active Substance: PREDNISONE
     Route: 048
  359. PREDNISONE [Concomitant]
     Active Substance: PREDNISONE
     Route: 048
  360. PANTOPRAZOLE SODIUM [Concomitant]
     Active Substance: PANTOPRAZOLE SODIUM
     Indication: Product used for unknown indication
     Route: 016
  361. PANTOPRAZOLE SODIUM [Concomitant]
     Active Substance: PANTOPRAZOLE SODIUM
  362. METHYLPREDNISOLONE SODIUM SUCCINATE [Concomitant]
     Active Substance: METHYLPREDNISOLONE SODIUM SUCCINATE
     Indication: Rheumatoid arthritis
  363. METHYLPREDNISOLONE SODIUM SUCCINATE [Concomitant]
     Active Substance: METHYLPREDNISOLONE SODIUM SUCCINATE
     Route: 014
  364. HYDROCORTISONE SODIUM SUCCINATE [Concomitant]
     Active Substance: HYDROCORTISONE SODIUM SUCCINATE
     Indication: Rheumatoid arthritis
     Route: 058
  365. HYDROCORTISONE SODIUM SUCCINATE [Concomitant]
     Active Substance: HYDROCORTISONE SODIUM SUCCINATE
  366. HYDROCORTISONE [Concomitant]
     Active Substance: HYDROCORTISONE
     Indication: Rheumatoid arthritis
     Route: 048
  367. HYDROCORTISONE [Concomitant]
     Active Substance: HYDROCORTISONE
     Route: 058
  368. HYDROCORTISONE [Concomitant]
     Active Substance: HYDROCORTISONE
  369. HYDROCORTISONE [Concomitant]
     Active Substance: HYDROCORTISONE
     Route: 058
  370. HYDROCORTISONE [Concomitant]
     Active Substance: HYDROCORTISONE
  371. DOXYCYCLINE HYCLATE [Concomitant]
     Active Substance: DOXYCYCLINE HYCLATE
     Indication: Product used for unknown indication
  372. DEPO-MEDROL [Concomitant]
     Active Substance: METHYLPREDNISOLONE ACETATE
     Indication: Product used for unknown indication
     Route: 013
  373. DEPO-MEDROL [Concomitant]
     Active Substance: METHYLPREDNISOLONE ACETATE
  374. DEPO-MEDROL [Concomitant]
     Active Substance: METHYLPREDNISOLONE ACETATE
     Route: 014
  375. CHLORAPREP ONE-STEP [Concomitant]
     Active Substance: CHLORHEXIDINE GLUCONATE\ISOPROPYL ALCOHOL
     Indication: Rheumatoid arthritis
     Route: 061
  376. CHLORAPREP ONE-STEP [Concomitant]
     Active Substance: CHLORHEXIDINE GLUCONATE\ISOPROPYL ALCOHOL
     Route: 061
  377. CHLORAPREP ONE-STEP [Concomitant]
     Active Substance: CHLORHEXIDINE GLUCONATE\ISOPROPYL ALCOHOL
  378. APREPITANT [Concomitant]
     Active Substance: APREPITANT
     Indication: Product used for unknown indication
     Route: 042
  379. APREPITANT [Concomitant]
     Active Substance: APREPITANT
  380. APREPITANT [Concomitant]
     Active Substance: APREPITANT
  381. APREPITANT [Concomitant]
     Active Substance: APREPITANT
  382. APREPITANT [Concomitant]
     Active Substance: APREPITANT
     Route: 042
  383. APREPITANT [Concomitant]
     Active Substance: APREPITANT
     Route: 048
  384. APREPITANT [Concomitant]
     Active Substance: APREPITANT
     Route: 048
  385. APREPITANT [Concomitant]
     Active Substance: APREPITANT
  386. ALENDRONATE SODIUM [Concomitant]
     Active Substance: ALENDRONATE SODIUM
     Indication: Rheumatoid arthritis
     Route: 048
  387. ALENDRONIC ACID [Concomitant]
     Active Substance: ALENDRONIC ACID
     Indication: Rheumatoid arthritis
     Route: 016
  388. ALENDRONIC ACID [Concomitant]
     Active Substance: ALENDRONIC ACID
     Route: 048
  389. ALENDRONIC ACID [Concomitant]
     Active Substance: ALENDRONIC ACID
  390. ALENDRONIC ACID [Concomitant]
     Active Substance: ALENDRONIC ACID
     Route: 048
  391. ALENDRONIC ACID [Concomitant]
     Active Substance: ALENDRONIC ACID
     Route: 048
  392. COSENTYX [Concomitant]
     Active Substance: SECUKINUMAB
     Indication: Rheumatoid arthritis
  393. COSENTYX [Concomitant]
     Active Substance: SECUKINUMAB
     Indication: Psoriatic arthropathy
     Route: 005
  394. COSENTYX [Concomitant]
     Active Substance: SECUKINUMAB
     Route: 005
  395. COSENTYX [Concomitant]
     Active Substance: SECUKINUMAB
  396. DICLOFENAC DIETHYLAMINE [Concomitant]
     Active Substance: DICLOFENAC DIETHYLAMINE
     Indication: Product used for unknown indication
  397. DICLOFENAC POTASSIUM [Concomitant]
     Active Substance: DICLOFENAC POTASSIUM
     Indication: Product used for unknown indication
  398. DICLOFENAC POTASSIUM [Concomitant]
     Active Substance: DICLOFENAC POTASSIUM
     Route: 048
  399. DICLOFENAC POTASSIUM [Concomitant]
     Active Substance: DICLOFENAC POTASSIUM
  400. DICLOFENAC POTASSIUM [Concomitant]
     Active Substance: DICLOFENAC POTASSIUM
     Route: 048
  401. DICLOFENAC POTASSIUM [Concomitant]
     Active Substance: DICLOFENAC POTASSIUM
     Route: 050
  402. DICLOFENAC POTASSIUM [Concomitant]
     Active Substance: DICLOFENAC POTASSIUM
     Route: 048
  403. DICLOFENAC SODIUM [Concomitant]
     Active Substance: DICLOFENAC SODIUM
     Indication: Rheumatoid arthritis
     Route: 048
  404. DICLOFENAC SODIUM [Concomitant]
     Active Substance: DICLOFENAC SODIUM
     Route: 047
  405. DICLOFENAC SODIUM [Concomitant]
     Active Substance: DICLOFENAC SODIUM
  406. DICLOFENAC SODIUM [Concomitant]
     Active Substance: DICLOFENAC SODIUM
  407. DICLOFENAC SODIUM [Concomitant]
     Active Substance: DICLOFENAC SODIUM
     Route: 058
  408. DICLOFENAC SODIUM [Concomitant]
     Active Substance: DICLOFENAC SODIUM
  409. DICLOFENAC SODIUM [Concomitant]
     Active Substance: DICLOFENAC SODIUM
  410. DICLOFENAC SODIUM [Concomitant]
     Active Substance: DICLOFENAC SODIUM
     Route: 048
  411. DICLOFENAC SODIUM [Concomitant]
     Active Substance: DICLOFENAC SODIUM
     Route: 058
  412. DICLOFENAC SODIUM [Concomitant]
     Active Substance: DICLOFENAC SODIUM
  413. DICLOFENAC SODIUM [Concomitant]
     Active Substance: DICLOFENAC SODIUM
     Route: 047
  414. DICLOFENAC SODIUM [Concomitant]
     Active Substance: DICLOFENAC SODIUM
  415. ERELZI [Concomitant]
     Active Substance: ETANERCEPT-SZZS
     Indication: Rheumatoid arthritis
     Route: 058
  416. ERELZI [Concomitant]
     Active Substance: ETANERCEPT-SZZS
     Route: 058
  417. ERELZI [Concomitant]
     Active Substance: ETANERCEPT-SZZS
  418. ERELZI [Concomitant]
     Active Substance: ETANERCEPT-SZZS
     Route: 058
  419. MYCOPHENOLATE MOFETIL [Concomitant]
     Active Substance: MYCOPHENOLATE MOFETIL
     Indication: Product used for unknown indication
  420. PANTOPRAZOLE [Concomitant]
     Active Substance: PANTOPRAZOLE
     Indication: Product used for unknown indication
  421. PANTOPRAZOLE [Concomitant]
     Active Substance: PANTOPRAZOLE
     Route: 016
  422. ACETAMINOPHEN AND CODEINE [Concomitant]
     Active Substance: ACETAMINOPHEN\CODEINE PHOSPHATE
     Indication: Product used for unknown indication
  423. ACETAMINOPHEN AND CODEINE [Concomitant]
     Active Substance: ACETAMINOPHEN\CODEINE PHOSPHATE
  424. DICLOFENAC POTASSIUM [Concomitant]
     Active Substance: DICLOFENAC POTASSIUM
     Indication: Product used for unknown indication
     Route: 047
  425. DICLOFENAC POTASSIUM [Concomitant]
     Active Substance: DICLOFENAC POTASSIUM
     Route: 048
  426. DICLOFENAC POTASSIUM [Concomitant]
     Active Substance: DICLOFENAC POTASSIUM
  427. DICLOFENAC POTASSIUM [Concomitant]
     Active Substance: DICLOFENAC POTASSIUM
  428. PREDNISONE [Concomitant]
     Active Substance: PREDNISONE
     Indication: Systemic lupus erythematosus
     Route: 048
  429. PREDNISONE [Concomitant]
     Active Substance: PREDNISONE
     Indication: Rheumatoid arthritis
  430. PREDNISONE [Concomitant]
     Active Substance: PREDNISONE
     Indication: Psoriatic arthropathy
     Route: 048
  431. PREDNISONE [Concomitant]
     Active Substance: PREDNISONE
     Indication: Pemphigus
     Route: 048
  432. PREDNISONE [Concomitant]
     Active Substance: PREDNISONE
     Indication: Inflammation
     Route: 048
  433. PREDNISONE [Concomitant]
     Active Substance: PREDNISONE
     Indication: Bursitis
     Route: 048
  434. PREDNISONE [Concomitant]
     Active Substance: PREDNISONE
     Indication: Synovitis
     Route: 048
  435. PREDNISONE [Concomitant]
     Active Substance: PREDNISONE
     Route: 048
  436. APREMILAST [Concomitant]
     Active Substance: APREMILAST
     Indication: Product used for unknown indication
  437. APREMILAST [Concomitant]
     Active Substance: APREMILAST
  438. ASACOL [Concomitant]
     Active Substance: MESALAMINE
     Indication: Product used for unknown indication
  439. CALCIUM [Concomitant]
     Active Substance: CALCIUM
     Indication: Product used for unknown indication
  440. CALCIUM GLUBIONATE [Concomitant]
     Active Substance: CALCIUM GLUBIONATE
     Indication: Product used for unknown indication
     Route: 016
  441. CALCIUM GLUBIONATE [Concomitant]
     Active Substance: CALCIUM GLUBIONATE
  442. CELEBREX [Concomitant]
     Active Substance: CELECOXIB
     Indication: Rheumatoid arthritis
     Route: 048
  443. CELEBREX [Concomitant]
     Active Substance: CELECOXIB
     Route: 048
  444. CELEBREX [Concomitant]
     Active Substance: CELECOXIB
     Route: 048
  445. CELECOXIB [Concomitant]
     Active Substance: CELECOXIB
     Indication: Product used for unknown indication
  446. CELECOXIB [Concomitant]
     Active Substance: CELECOXIB
  447. CELECOXIB [Concomitant]
     Active Substance: CELECOXIB
  448. CELECOXIB [Concomitant]
     Active Substance: CELECOXIB
  449. CERTOLIZUMAB PEGOL [Concomitant]
     Active Substance: CERTOLIZUMAB PEGOL
     Indication: Product used for unknown indication
  450. CHLORAPREP [Concomitant]
     Active Substance: CHLORHEXIDINE GLUCONATE\ISOPROPYL ALCOHOL
     Indication: Product used for unknown indication
     Route: 061
  451. CHLORAPREP [Concomitant]
     Active Substance: CHLORHEXIDINE GLUCONATE\ISOPROPYL ALCOHOL
     Route: 061
  452. CHLORAPREP [Concomitant]
     Active Substance: CHLORHEXIDINE GLUCONATE\ISOPROPYL ALCOHOL
     Route: 061
  453. CHLORAPREP [Concomitant]
     Active Substance: CHLORHEXIDINE GLUCONATE\ISOPROPYL ALCOHOL
  454. CHLORAPREP [Concomitant]
     Active Substance: CHLORHEXIDINE GLUCONATE\ISOPROPYL ALCOHOL
     Route: 061
  455. CHLORAPREP [Concomitant]
     Active Substance: CHLORHEXIDINE GLUCONATE\ISOPROPYL ALCOHOL
     Route: 048
  456. CHLORAPREP [Concomitant]
     Active Substance: CHLORHEXIDINE GLUCONATE\ISOPROPYL ALCOHOL
     Route: 048
  457. CHLORAPREP [Concomitant]
     Active Substance: CHLORHEXIDINE GLUCONATE\ISOPROPYL ALCOHOL
     Route: 061
  458. CHOLECALCIFEROL [Concomitant]
     Active Substance: CHOLECALCIFEROL
     Indication: Rheumatoid arthritis
     Route: 016
  459. CHOLECALCIFEROL [Concomitant]
     Active Substance: CHOLECALCIFEROL
  460. CORTISONE ACETATE [Concomitant]
     Active Substance: CORTISONE ACETATE
     Indication: Rheumatoid arthritis
     Route: 048
  461. CORTISONE ACETATE [Concomitant]
     Active Substance: CORTISONE ACETATE
     Route: 050
  462. CORTISONE ACETATE [Concomitant]
     Active Substance: CORTISONE ACETATE
     Route: 061
  463. CORTISONE ACETATE [Concomitant]
     Active Substance: CORTISONE ACETATE
  464. CORTISONE ACETATE [Concomitant]
     Active Substance: CORTISONE ACETATE
  465. CORTISONE ACETATE [Concomitant]
     Active Substance: CORTISONE ACETATE
     Route: 061
  466. CORTISONE ACETATE [Concomitant]
     Active Substance: CORTISONE ACETATE
     Route: 061
  467. CORTISONE ACETATE [Concomitant]
     Active Substance: CORTISONE ACETATE
     Route: 048
  468. CORTISONE ACETATE [Concomitant]
     Active Substance: CORTISONE ACETATE
     Route: 061
  469. DILTIAZEM HYDROCHLORIDE [Concomitant]
     Active Substance: DILTIAZEM HYDROCHLORIDE
     Indication: Product used for unknown indication
  470. DILTIAZEM HYDROCHLORIDE [Concomitant]
     Active Substance: DILTIAZEM HYDROCHLORIDE
     Route: 042
  471. DILTIAZEM HYDROCHLORIDE [Concomitant]
     Active Substance: DILTIAZEM HYDROCHLORIDE
     Indication: Product used for unknown indication
     Route: 042
  472. DILTIAZEM HYDROCHLORIDE [Concomitant]
     Active Substance: DILTIAZEM HYDROCHLORIDE
  473. DOXYCYCLINE [Concomitant]
     Active Substance: DOXYCYCLINE
     Indication: Product used for unknown indication
  474. ENTYVIO [Concomitant]
     Active Substance: VEDOLIZUMAB
     Indication: Product used for unknown indication
  475. FLUMETHASONE PIVALATE [Concomitant]
     Active Substance: FLUMETHASONE PIVALATE
     Indication: Rheumatoid arthritis
  476. FLUMETHASONE PIVALATE [Concomitant]
     Active Substance: FLUMETHASONE PIVALATE
     Route: 058
  477. FLUMETHASONE PIVALATE [Concomitant]
     Active Substance: FLUMETHASONE PIVALATE
     Route: 058
  478. FLUMETHASONE PIVALATE [Concomitant]
     Active Substance: FLUMETHASONE PIVALATE
     Route: 003
  479. FLUMETHASONE PIVALATE [Concomitant]
     Active Substance: FLUMETHASONE PIVALATE
  480. FLUMETHASONE PIVALATE [Concomitant]
     Active Substance: FLUMETHASONE PIVALATE
     Route: 048
  481. GOLIMUMAB [Concomitant]
     Active Substance: GOLIMUMAB
     Indication: Rheumatoid arthritis
     Route: 058
  482. HYDROCORTISONE PROBUTATE [Concomitant]
     Active Substance: HYDROCORTISONE PROBUTATE
     Indication: Rheumatoid arthritis
     Route: 048
  483. HYDROCORTISONE PROBUTATE [Concomitant]
     Active Substance: HYDROCORTISONE PROBUTATE
     Route: 050
  484. HYDROCORTISONE PROBUTATE [Concomitant]
     Active Substance: HYDROCORTISONE PROBUTATE
     Route: 058
  485. HYDROXYCHLOROQUINE SULFATE [Concomitant]
     Active Substance: HYDROXYCHLOROQUINE SULFATE
     Indication: Systemic lupus erythematosus
     Route: 066
  486. HYDROXYCHLOROQUINE SULFATE [Concomitant]
     Active Substance: HYDROXYCHLOROQUINE SULFATE
     Indication: Rheumatoid arthritis
     Route: 048
  487. HYDROXYCHLOROQUINE SULFATE [Concomitant]
     Active Substance: HYDROXYCHLOROQUINE SULFATE
     Route: 048
  488. HYDROXYCHLOROQUINE SULFATE [Concomitant]
     Active Substance: HYDROXYCHLOROQUINE SULFATE
  489. HYDROXYCHLOROQUINE SULFATE [Concomitant]
     Active Substance: HYDROXYCHLOROQUINE SULFATE
     Route: 058
  490. HYDROXYCHLOROQUINE SULFATE [Concomitant]
     Active Substance: HYDROXYCHLOROQUINE SULFATE
  491. HYDROXYCHLOROQUINE SULFATE [Concomitant]
     Active Substance: HYDROXYCHLOROQUINE SULFATE
     Route: 016
  492. HYDROXYCHLOROQUINE SULFATE [Concomitant]
     Active Substance: HYDROXYCHLOROQUINE SULFATE
     Route: 048
  493. HYDROXYCHLOROQUINE SULFATE [Concomitant]
     Active Substance: HYDROXYCHLOROQUINE SULFATE
     Route: 058
  494. HYDROXYCHLOROQUINE SULFATE [Concomitant]
     Active Substance: HYDROXYCHLOROQUINE SULFATE
  495. HYDROXYCHLOROQUINE SULFATE [Concomitant]
     Active Substance: HYDROXYCHLOROQUINE SULFATE
     Route: 048
  496. HYDROXYCHLOROQUINE SULFATE [Concomitant]
     Active Substance: HYDROXYCHLOROQUINE SULFATE
  497. HYDROXYCHLOROQUINE SULFATE [Concomitant]
     Active Substance: HYDROXYCHLOROQUINE SULFATE
     Route: 048
  498. IBUPROFEN [Concomitant]
     Active Substance: IBUPROFEN
     Indication: Product used for unknown indication
  499. KEVZARA [Concomitant]
     Active Substance: SARILUMAB
     Indication: Product used for unknown indication
  500. LISINOPRIL [Concomitant]
     Active Substance: LISINOPRIL
     Indication: Product used for unknown indication
  501. LYRICA [Concomitant]
     Active Substance: PREGABALIN
     Indication: Product used for unknown indication
  502. MOXIFLOXACIN [Concomitant]
     Active Substance: MOXIFLOXACIN
     Indication: Product used for unknown indication
     Route: 058
  503. NAPROXEN SODIUM [Concomitant]
     Active Substance: NAPROXEN SODIUM
     Indication: Rheumatoid arthritis
  504. NAPROXEN SODIUM [Concomitant]
     Active Substance: NAPROXEN SODIUM
  505. NEOMYCIN [Concomitant]
     Active Substance: NEOMYCIN
     Indication: Product used for unknown indication
  506. PHTHALYLSULFATHIAZOLE [Concomitant]
     Active Substance: PHTHALYLSULFATHIAZOLE
     Indication: Rheumatoid arthritis
     Route: 048
  507. PHTHALYLSULFATHIAZOLE [Concomitant]
     Active Substance: PHTHALYLSULFATHIAZOLE
     Route: 048
  508. PHTHALYLSULFATHIAZOLE [Concomitant]
     Active Substance: PHTHALYLSULFATHIAZOLE
     Route: 048
  509. PHTHALYLSULFATHIAZOLE [Concomitant]
     Active Substance: PHTHALYLSULFATHIAZOLE
     Route: 058
  510. PHTHALYLSULFATHIAZOLE [Concomitant]
     Active Substance: PHTHALYLSULFATHIAZOLE
     Dosage: 365 DAYS
     Route: 048
  511. PHTHALYLSULFATHIAZOLE [Concomitant]
     Active Substance: PHTHALYLSULFATHIAZOLE
     Route: 048
  512. PHTHALYLSULFATHIAZOLE [Concomitant]
     Active Substance: PHTHALYLSULFATHIAZOLE
  513. PHTHALYLSULFATHIAZOLE [Concomitant]
     Active Substance: PHTHALYLSULFATHIAZOLE
     Route: 016
  514. PHTHALYLSULFATHIAZOLE [Concomitant]
     Active Substance: PHTHALYLSULFATHIAZOLE
     Route: 048
  515. PHTHALYLSULFATHIAZOLE [Concomitant]
     Active Substance: PHTHALYLSULFATHIAZOLE
     Route: 042
  516. PHTHALYLSULFATHIAZOLE [Concomitant]
     Active Substance: PHTHALYLSULFATHIAZOLE
  517. PHTHALYLSULFATHIAZOLE [Concomitant]
     Active Substance: PHTHALYLSULFATHIAZOLE
     Route: 048
  518. PHTHALYLSULFATHIAZOLE [Concomitant]
     Active Substance: PHTHALYLSULFATHIAZOLE
     Route: 016
  519. PREDNISOLONE [Concomitant]
     Active Substance: PREDNISOLONE
     Indication: Product used for unknown indication
  520. PREGABALIN [Concomitant]
     Active Substance: PREGABALIN
     Indication: Product used for unknown indication
  521. PSEUDOEPHEDRINE HYDROCHLORIDE [Concomitant]
     Active Substance: PSEUDOEPHEDRINE HYDROCHLORIDE
     Indication: Rheumatoid arthritis
  522. PSEUDOEPHEDRINE HYDROCHLORIDE [Concomitant]
     Active Substance: PSEUDOEPHEDRINE HYDROCHLORIDE
  523. PSEUDOEPHEDRINE HYDROCHLORIDE [Concomitant]
     Active Substance: PSEUDOEPHEDRINE HYDROCHLORIDE
  524. PSEUDOEPHEDRINE HYDROCHLORIDE [Concomitant]
     Active Substance: PSEUDOEPHEDRINE HYDROCHLORIDE
  525. PSEUDOEPHEDRINE HYDROCHLORIDE [Concomitant]
     Active Substance: PSEUDOEPHEDRINE HYDROCHLORIDE
  526. RAMIPRIL [Concomitant]
     Active Substance: RAMIPRIL
     Indication: Rheumatoid arthritis
     Route: 042
  527. RAMIPRIL [Concomitant]
     Active Substance: RAMIPRIL
  528. CETIRIZINE HYDROCHLORIDE [Concomitant]
     Active Substance: CETIRIZINE HYDROCHLORIDE
     Indication: Urticaria
  529. CETIRIZINE HYDROCHLORIDE [Concomitant]
     Active Substance: CETIRIZINE HYDROCHLORIDE
     Indication: Rheumatoid arthritis
     Route: 048
  530. CETIRIZINE HYDROCHLORIDE [Concomitant]
     Active Substance: CETIRIZINE HYDROCHLORIDE
     Route: 016
  531. CETIRIZINE HYDROCHLORIDE [Concomitant]
     Active Substance: CETIRIZINE HYDROCHLORIDE
  532. CETIRIZINE HYDROCHLORIDE [Concomitant]
     Active Substance: CETIRIZINE HYDROCHLORIDE
     Route: 005
  533. VITAMIN C [Concomitant]
     Active Substance: ASCORBIC ACID
     Indication: Product used for unknown indication
  534. VITAMIN C [Concomitant]
     Active Substance: ASCORBIC ACID
     Route: 016
  535. PREDNISONE [Concomitant]
     Active Substance: PREDNISONE
     Indication: Rheumatoid arthritis
     Route: 048
  536. PREDNISONE [Concomitant]
     Active Substance: PREDNISONE
  537. CHLORHEXIDINE GLUCONATE\ISOPROPYL ALCOHOL [Concomitant]
     Active Substance: CHLORHEXIDINE GLUCONATE\ISOPROPYL ALCOHOL
     Indication: Product used for unknown indication
     Route: 061
  538. CHLORHEXIDINE GLUCONATE\ISOPROPYL ALCOHOL [Concomitant]
     Active Substance: CHLORHEXIDINE GLUCONATE\ISOPROPYL ALCOHOL
     Route: 002
  539. CHLORHEXIDINE GLUCONATE\ISOPROPYL ALCOHOL [Concomitant]
     Active Substance: CHLORHEXIDINE GLUCONATE\ISOPROPYL ALCOHOL
     Route: 048
  540. DESOGESTREL\ETHINYL ESTRADIOL [Concomitant]
     Active Substance: DESOGESTREL\ETHINYL ESTRADIOL
     Indication: Product used for unknown indication
  541. MARVELON [Concomitant]
     Active Substance: DESOGESTREL\ETHINYL ESTRADIOL
     Indication: Product used for unknown indication
  542. HYDROXYCHLOROQUINE DIPHOSPHATE [Concomitant]
     Active Substance: HYDROXYCHLOROQUINE DIPHOSPHATE
     Indication: Product used for unknown indication
  543. SULFASALAZINE [Concomitant]
     Active Substance: SULFASALAZINE
     Indication: Rheumatoid arthritis
  544. SULFASALAZINE [Concomitant]
     Active Substance: SULFASALAZINE
     Route: 048
  545. SULFASALAZINE [Concomitant]
     Active Substance: SULFASALAZINE
     Route: 048
  546. SULFASALAZINE [Concomitant]
     Active Substance: SULFASALAZINE
     Route: 048
  547. STELARA [Concomitant]
     Active Substance: USTEKINUMAB
     Indication: Psoriatic arthropathy
     Route: 058
  548. STELARA [Concomitant]
     Active Substance: USTEKINUMAB
     Route: 058
  549. STELARA [Concomitant]
     Active Substance: USTEKINUMAB
     Route: 058
  550. STELARA [Concomitant]
     Active Substance: USTEKINUMAB
     Route: 042
  551. ZOPICLONE [Concomitant]
     Active Substance: ZOPICLONE
     Indication: Product used for unknown indication
  552. ZOPICLONE [Concomitant]
     Active Substance: ZOPICLONE
  553. OTEZLA [Concomitant]
     Active Substance: APREMILAST
     Indication: Product used for unknown indication
  554. OTEZLA [Concomitant]
     Active Substance: APREMILAST
     Route: 042
  555. OTEZLA [Concomitant]
     Active Substance: APREMILAST
     Route: 048
  556. OTEZLA [Concomitant]
     Active Substance: APREMILAST
  557. TRAMADOL HYDROCHLORIDE [Concomitant]
     Active Substance: TRAMADOL HYDROCHLORIDE
     Indication: Product used for unknown indication
  558. LORAZEPAM [Concomitant]
     Active Substance: LORAZEPAM
     Indication: Product used for unknown indication
  559. FISH OIL [Concomitant]
     Active Substance: FISH OIL
     Indication: Product used for unknown indication
  560. FLUMETHASONE PIVALATE [Concomitant]
     Active Substance: FLUMETHASONE PIVALATE
     Indication: Rheumatoid arthritis
     Route: 058
  561. TYLENOL WITH CODEINE [Concomitant]
     Active Substance: ACETAMINOPHEN\CODEINE PHOSPHATE
     Indication: Product used for unknown indication
  562. DICLOFENAC [Concomitant]
     Active Substance: DICLOFENAC
     Indication: Product used for unknown indication
  563. ERYTHROMYCIN [Concomitant]
     Active Substance: ERYTHROMYCIN
     Indication: Product used for unknown indication
  564. ACETAMINOPHEN AND CODEINE [Concomitant]
     Active Substance: ACETAMINOPHEN\CODEINE PHOSPHATE
     Indication: Rheumatoid arthritis
  565. AIMOVIG [Concomitant]
     Active Substance: ERENUMAB-AOOE
     Indication: Rheumatoid arthritis
  566. AZATHIOPRINE [Concomitant]
     Active Substance: AZATHIOPRINE
     Indication: Product used for unknown indication
  567. BERINERT [Concomitant]
     Active Substance: HUMAN C1-ESTERASE INHIBITOR
     Indication: Product used for unknown indication
  568. BETAMETHASONE [Concomitant]
     Active Substance: BETAMETHASONE
     Indication: Product used for unknown indication
  569. BOTULINUM TOXIN TYPE A [Concomitant]
     Active Substance: BOTULINUM TOXIN TYPE A
     Indication: Product used for unknown indication
     Route: 030
  570. BOTULINUM TOXIN TYPE A [Concomitant]
     Active Substance: BOTULINUM TOXIN TYPE A
  571. BUPRENORPHINE [Concomitant]
     Active Substance: BUPRENORPHINE
     Indication: Product used for unknown indication
  572. CANDESARTAN [Concomitant]
     Active Substance: CANDESARTAN
     Indication: Migraine
     Route: 048
  573. CANDESARTAN [Concomitant]
     Active Substance: CANDESARTAN
     Indication: Rheumatoid arthritis
  574. CETIRIZINE [Concomitant]
     Active Substance: CETIRIZINE HYDROCHLORIDE
     Indication: Rheumatoid arthritis
     Route: 048
  575. CETIRIZINE [Concomitant]
     Active Substance: CETIRIZINE HYDROCHLORIDE
     Route: 048
  576. CETIRIZINE [Concomitant]
     Active Substance: CETIRIZINE HYDROCHLORIDE
  577. CETIRIZINE [Concomitant]
     Active Substance: CETIRIZINE HYDROCHLORIDE
  578. CETIRIZINE [Concomitant]
     Active Substance: CETIRIZINE HYDROCHLORIDE
     Route: 048
  579. CETIRIZINE [Concomitant]
     Active Substance: CETIRIZINE HYDROCHLORIDE
     Route: 048
  580. CETIRIZINE [Concomitant]
     Active Substance: CETIRIZINE HYDROCHLORIDE
     Route: 048
  581. CETIRIZINE [Concomitant]
     Active Substance: CETIRIZINE HYDROCHLORIDE
     Route: 048
  582. CYCLOBENZAPRINE [Concomitant]
     Active Substance: CYCLOBENZAPRINE
     Indication: Product used for unknown indication
  583. DESOXIMETASONE [Concomitant]
     Active Substance: DESOXIMETASONE
     Indication: Rheumatoid arthritis
     Route: 048
  584. DESOXIMETASONE [Concomitant]
     Active Substance: DESOXIMETASONE
     Route: 048
  585. DESOXIMETASONE [Concomitant]
     Active Substance: DESOXIMETASONE
     Route: 048
  586. DESOXIMETASONE [Concomitant]
     Active Substance: DESOXIMETASONE
     Route: 061
  587. DESOXIMETASONE [Concomitant]
     Active Substance: DESOXIMETASONE
     Route: 061
  588. DESOXIMETASONE [Concomitant]
     Active Substance: DESOXIMETASONE
     Route: 048
  589. DESOXIMETASONE [Concomitant]
     Active Substance: DESOXIMETASONE
     Route: 003
  590. DESOXIMETASONE [Concomitant]
     Active Substance: DESOXIMETASONE
     Route: 058
  591. DICLOFENAC DIETHYLAMINE [Concomitant]
     Active Substance: DICLOFENAC DIETHYLAMINE
     Indication: Product used for unknown indication
  592. DOMPERIDONE [Concomitant]
     Active Substance: DOMPERIDONE
     Indication: Product used for unknown indication
  593. ERGOCALCIFEROL [Concomitant]
     Active Substance: ERGOCALCIFEROL
     Indication: Product used for unknown indication
  594. FINACEA [Concomitant]
     Active Substance: AZELAIC ACID
     Indication: Product used for unknown indication
  595. FLUTICASONE PROPIONATE [Concomitant]
     Active Substance: FLUTICASONE PROPIONATE
     Indication: Product used for unknown indication
  596. GOLD SODIUM THIOMALATE [Concomitant]
     Active Substance: GOLD SODIUM THIOMALATE
     Indication: Product used for unknown indication
  597. HYDROMORPHONE [Concomitant]
     Active Substance: HYDROMORPHONE
     Indication: Rheumatoid arthritis
  598. LAMOTRIGINE [Concomitant]
     Active Substance: LAMOTRIGINE
     Indication: Product used for unknown indication
     Route: 048
  599. LAMOTRIGINE [Concomitant]
     Active Substance: LAMOTRIGINE
     Route: 048
  600. LAMOTRIGINE [Concomitant]
     Active Substance: LAMOTRIGINE
     Route: 048
  601. LAMOTRIGINE [Concomitant]
     Active Substance: LAMOTRIGINE
     Route: 048
  602. LEVOMILNACIPRAN [Concomitant]
     Active Substance: LEVOMILNACIPRAN
     Indication: Product used for unknown indication
  603. MAGNESIUM [Concomitant]
     Active Substance: MAGNESIUM
     Indication: Product used for unknown indication
  604. METHYLPREDNISOLONE [Concomitant]
     Active Substance: METHYLPREDNISOLONE
     Indication: Product used for unknown indication
  605. MINOCYCLINE [Concomitant]
     Active Substance: MINOCYCLINE HYDROCHLORIDE
     Indication: Product used for unknown indication
  606. MYRBETRIQ [Concomitant]
     Active Substance: MIRABEGRON
     Indication: Product used for unknown indication
     Dosage: TABLET (EXTENDED- RELEASE)
  607. NUCALA [Concomitant]
     Active Substance: MEPOLIZUMAB
     Indication: Product used for unknown indication
  608. PSEUDOEPHEDRINE HYDROCHLORIDE [Concomitant]
     Active Substance: PSEUDOEPHEDRINE HYDROCHLORIDE
     Indication: Rheumatoid arthritis
  609. PSEUDOEPHEDRINE HYDROCHLORIDE [Concomitant]
     Active Substance: PSEUDOEPHEDRINE HYDROCHLORIDE
  610. PSEUDOEPHEDRINE HYDROCHLORIDE [Concomitant]
     Active Substance: PSEUDOEPHEDRINE HYDROCHLORIDE
  611. TOPIRAMATE [Concomitant]
     Active Substance: TOPIRAMATE
     Indication: Migraine
  612. TOPIRAMATE [Concomitant]
     Active Substance: TOPIRAMATE
  613. TOPIRAMATE [Concomitant]
     Active Substance: TOPIRAMATE
  614. TRAZODONE [Concomitant]
     Active Substance: TRAZODONE HYDROCHLORIDE
     Indication: Product used for unknown indication
  615. TRETINOIN [Concomitant]
     Active Substance: TRETINOIN
     Indication: Product used for unknown indication
  616. SULFATRIM [Concomitant]
     Active Substance: SULFAMETHOXAZOLE\TRIMETHOPRIM
     Indication: Product used for unknown indication
  617. TRAMADOL [Concomitant]
     Active Substance: TRAMADOL
     Indication: Product used for unknown indication
  618. ACETAMINOPHEN\BUTALBITAL [Concomitant]
     Active Substance: ACETAMINOPHEN\BUTALBITAL
     Indication: Rheumatoid arthritis
  619. DIETARY SUPPLEMENT\MINERALS\VITAMINS [Concomitant]
     Active Substance: DIETARY SUPPLEMENT\MINERALS\VITAMINS
     Indication: Product used for unknown indication
  620. CHLORHEXIDINE ACETATE [Concomitant]
     Active Substance: CHLORHEXIDINE ACETATE
     Indication: Product used for unknown indication
     Route: 002
  621. CHLORHEXIDINE ACETATE [Concomitant]
     Active Substance: CHLORHEXIDINE ACETATE
  622. NAPROXEN [Concomitant]
     Active Substance: NAPROXEN
     Indication: Rheumatoid arthritis
  623. TUMS [Concomitant]
     Active Substance: CALCIUM CARBONATE
     Indication: Product used for unknown indication

REACTIONS (1)
  - Death [Fatal]
